FAERS Safety Report 11835412 (Version 1)
Quarter: 2015Q4

REPORT INFORMATION
  Report Type: Spontaneous
  Country: US (occurrence: US)
  Receive Date: 20151215
  Receipt Date: 20151215
  Transmission Date: 20160305
  Serious: No
  Sender: FDA-Public Use
  Company Number: ZYD-15-AE-226

PATIENT

DRUGS (1)
  1. LOSARTAN. [Suspect]
     Active Substance: LOSARTAN
     Indication: HYPERTENSION

REACTIONS (6)
  - Anxiety [Unknown]
  - Dyspnoea [Unknown]
  - Malaise [Unknown]
  - Drug ineffective [Unknown]
  - Asthenia [Unknown]
  - Blood pressure fluctuation [Unknown]
